FAERS Safety Report 7652912-3 (Version None)
Quarter: 2011Q3

REPORT INFORMATION
  Report Type: 
  Country: None (occurrence: None)
  Receive Date: 20110728
  Receipt Date: 20110713
  Transmission Date: 20111222
  Serious: Yes (Other)
  Sender: FDA-Public Use
  Company Number: 1000022003

PATIENT
  Age: 30 Year
  Sex: Male

DRUGS (3)
  1. EPILEM (EPIRUBICIN HYDROCHLORIDE) (EPIRUBICIN HYDROCHLORIDE) [Concomitant]
  2. CITALOPRAM HYDROBROMIDE [Suspect]
     Dosage: 60 MG, 40 MG
     Dates: start: 20080101
  3. LAMOTRIGINE [Concomitant]

REACTIONS (6)
  - PATERNAL DRUGS AFFECTING FOETUS [None]
  - SPERMATOZOA PROGRESSIVE MOTILITY DECREASED [None]
  - SPERM CONCENTRATION DECREASED [None]
  - MISCARRIAGE OF PARTNER [None]
  - PREGNANCY OF PARTNER [None]
  - SPERMATOZOA MORPHOLOGY ABNORMAL [None]
